FAERS Safety Report 18484612 (Version 3)
Quarter: 2021Q1

REPORT INFORMATION
  Report Type: Report from Study
  Country: ES (occurrence: ES)
  Receive Date: 20201110
  Receipt Date: 20210113
  Transmission Date: 20210419
  Serious: Yes (Hospitalization)
  Sender: FDA-Public Use
  Company Number: NVSC2020ES290584

PATIENT
  Age: 84 Year
  Sex: Female
  Weight: 55.7 kg

DRUGS (30)
  1. CAPMATINIB [Suspect]
     Active Substance: CAPMATINIB
     Dosage: UNK
     Route: 048
     Dates: start: 20201027
  2. PARACETAMOL [Concomitant]
     Active Substance: ACETAMINOPHEN
     Dosage: UNK
     Route: 065
     Dates: start: 20201027
  3. VALPROATE [Concomitant]
     Active Substance: VALPROIC ACID
     Indication: PROPHYLAXIS
     Dosage: 300 MG, QD
     Route: 048
     Dates: start: 20200716
  4. IPRATROPIUM BROMIDE. [Concomitant]
     Active Substance: IPRATROPIUM BROMIDE
     Indication: DYSPNOEA
     Dosage: 20 UG, TID
     Route: 055
     Dates: start: 20200920, end: 20200925
  5. METHYLPREDNISOLONE. [Concomitant]
     Active Substance: METHYLPREDNISOLONE
     Dosage: UNK
     Route: 065
     Dates: start: 20201026
  6. FUROSEMIDE. [Concomitant]
     Active Substance: FUROSEMIDE
     Indication: PERICARDIAL EFFUSION
     Dosage: 20 MG, QD
     Route: 042
     Dates: start: 20200923, end: 20200925
  7. PEMBROLIZUMAB. [Suspect]
     Active Substance: PEMBROLIZUMAB
     Dosage: UNK
     Route: 042
     Dates: start: 20201027
  8. BEMIPARIN [Concomitant]
     Active Substance: BEMIPARIN
     Indication: EMBOLISM
     Dosage: 3500 MG, QD
     Route: 058
     Dates: start: 20200923, end: 20200924
  9. CAPMATINIB [Suspect]
     Active Substance: CAPMATINIB
     Indication: NON-SMALL CELL LUNG CANCER
     Dosage: 400 MG, BID
     Route: 048
     Dates: start: 20200915, end: 20201026
  10. BEMIPARIN [Concomitant]
     Active Substance: BEMIPARIN
     Dosage: UNK
     Route: 065
     Dates: start: 20201027
  11. TRAMADOL. [Concomitant]
     Active Substance: TRAMADOL
     Indication: GENERAL PHYSICAL CONDITION
     Dosage: 50 MG, TID
     Route: 048
     Dates: start: 20200925
  12. METOCLOPRAMIDE. [Concomitant]
     Active Substance: METOCLOPRAMIDE
     Indication: GENERAL PHYSICAL CONDITION
     Dosage: UNK
     Route: 065
     Dates: start: 20201027
  13. PARACETAMOL [Concomitant]
     Active Substance: ACETAMINOPHEN
     Indication: GENERAL PHYSICAL CONDITION
     Dosage: 1 G, TID
     Route: 048
     Dates: start: 20200925, end: 20201026
  14. SIMVASTATINE [Concomitant]
     Active Substance: SIMVASTATIN
     Indication: DYSLIPIDAEMIA
     Dosage: UNK
     Route: 065
     Dates: start: 20000101, end: 20201026
  15. SIMVASTATINE [Concomitant]
     Active Substance: SIMVASTATIN
     Dosage: 40 MG, QD
     Route: 048
     Dates: start: 2020
  16. ENOXAPARIN [Concomitant]
     Active Substance: ENOXAPARIN
     Dosage: 40 MG, QD
     Route: 058
     Dates: start: 20200920, end: 20200921
  17. METHYLPREDNISOLONE. [Concomitant]
     Active Substance: METHYLPREDNISOLONE
     Indication: TRANSAMINASES INCREASED
     Dosage: 60 MG, QD
     Route: 042
     Dates: start: 20200920, end: 20200925
  18. FORMOTEROL [Concomitant]
     Active Substance: FORMOTEROL
     Indication: DYSPNOEA
     Dosage: 6 UG, BID
     Route: 055
     Dates: start: 20200921, end: 20200925
  19. HYDROCORTISONE. [Concomitant]
     Active Substance: HYDROCORTISONE
     Indication: PERICARDIAL EFFUSION
     Dosage: 200 MG, ONCE/SINGLE
     Route: 042
     Dates: start: 20200920, end: 20200920
  20. OMEPRAZOLE. [Concomitant]
     Active Substance: OMEPRAZOLE
     Indication: TRANSAMINASES INCREASED
     Dosage: UNK
     Route: 065
     Dates: start: 20201027
  21. SERTRALINE [Concomitant]
     Active Substance: SERTRALINE HYDROCHLORIDE
     Indication: GENERAL PHYSICAL CONDITION
     Dosage: UNK
     Route: 065
     Dates: start: 20200920, end: 20201026
  22. ENOXAPARIN [Concomitant]
     Active Substance: ENOXAPARIN
     Dosage: 60 MG, QD
     Route: 058
     Dates: start: 20200925, end: 20201026
  23. ATORVASTATINE [Concomitant]
     Active Substance: ATORVASTATIN
     Indication: DYSLIPIDAEMIA
     Dosage: UNK
     Route: 065
     Dates: start: 20201027
  24. LEVOFLOXACIN. [Concomitant]
     Active Substance: LEVOFLOXACIN
     Indication: PERICARDIAL EFFUSION
     Dosage: 500 MG, QD
     Route: 048
     Dates: start: 20200920, end: 20200925
  25. BECLOMETHASONE [Concomitant]
     Active Substance: BECLOMETHASONE
     Indication: DYSPNOEA
     Dosage: 200 UG, BID
     Route: 055
     Dates: start: 20200921, end: 20200925
  26. PEMBROLIZUMAB. [Suspect]
     Active Substance: PEMBROLIZUMAB
     Indication: NON-SMALL CELL LUNG CANCER
     Dosage: 200 MG, Q3W
     Route: 042
     Dates: start: 20200915, end: 20201006
  27. ACETYLSALICYLIC ACID [Concomitant]
     Active Substance: ASPIRIN
     Indication: EMBOLISM
     Dosage: UNK
     Route: 065
     Dates: start: 20201027
  28. ENOXAPARIN [Concomitant]
     Active Substance: ENOXAPARIN
     Indication: EMBOLISM
     Dosage: 60 MEQ, BID
     Route: 058
     Dates: start: 20200720, end: 20200919
  29. ZOLPIDEM [Concomitant]
     Active Substance: ZOLPIDEM TARTRATE
     Indication: PROPHYLAXIS
     Dosage: UNK
     Route: 065
     Dates: start: 20201027
  30. MORPHINE HYDROCHLORIDE [Concomitant]
     Active Substance: MORPHINE HYDROCHLORIDE
     Indication: DYSPNOEA
     Dosage: 3.3 MG, ONCE/SINGLE
     Route: 058
     Dates: start: 20200920, end: 20200920

REACTIONS (1)
  - Immune-mediated hepatitis [Recovered/Resolved]

NARRATIVE: CASE EVENT DATE: 20201026
